FAERS Safety Report 5689061-X (Version None)
Quarter: 2008Q1

REPORT INFORMATION
  Report Type: 
  Country: None (occurrence: None)
  Receive Date: 20080331
  Receipt Date: 20080326
  Transmission Date: 20080703
  Serious: Yes (Other)
  Sender: FDA-Public Use
  Company Number: B0513947A

PATIENT
  Age: 57 Year
  Sex: Female
  Weight: 72 kg

DRUGS (2)
  1. BUPROPION HYDROCHLORIDE [Suspect]
     Indication: SMOKING CESSATION THERAPY
     Route: 048
     Dates: start: 20080302, end: 20080311
  2. OMEPRAZOLE [Concomitant]
     Dates: start: 20080125

REACTIONS (4)
  - ABNORMAL DREAMS [None]
  - DEPRESSED MOOD [None]
  - DEPRESSION [None]
  - TEARFULNESS [None]
